FAERS Safety Report 14538005 (Version 3)
Quarter: 2018Q1

REPORT INFORMATION
  Report Type: Spontaneous
  Country: DE (occurrence: DE)
  Receive Date: 20180216
  Receipt Date: 20180316
  Transmission Date: 20180509
  Serious: Yes (Life-Threatening, Hospitalization)
  Sender: FDA-Public Use
  Company Number: DE-B.I. PHARMACEUTICALS,INC./RIDGEFIELD-2018-BI-008626

PATIENT
  Age: 46 Year
  Sex: Female
  Weight: 95.9 kg

DRUGS (2)
  1. JARDIANCE [Suspect]
     Active Substance: EMPAGLIFLOZIN
     Indication: TYPE 1 DIABETES MELLITUS
     Route: 048
     Dates: start: 20160630, end: 20180114
  2. METFORMIN [Concomitant]
     Active Substance: METFORMIN HYDROCHLORIDE
     Indication: PRODUCT USED FOR UNKNOWN INDICATION
     Route: 065
     Dates: start: 20151228

REACTIONS (6)
  - Ketoacidosis [Recovered/Resolved]
  - Latent autoimmune diabetes in adults [Unknown]
  - Somnolence [Unknown]
  - Gastroenteritis [Unknown]
  - Insulin C-peptide [Unknown]
  - Off label use [Unknown]

NARRATIVE: CASE EVENT DATE: 201801
